FAERS Safety Report 7819849-8 (Version None)
Quarter: 2011Q4

REPORT INFORMATION
  Report Type: 
  Country: None (occurrence: None)
  Receive Date: 20111018
  Receipt Date: 20110803
  Transmission Date: 20120403
  Serious: No
  Sender: FDA-Public Use
  Company Number: US-ASTRAZENECA-2011SE46716

PATIENT
  Age: 78 Year
  Sex: Female
  Weight: 51.3 kg

DRUGS (9)
  1. CRESTOR [Concomitant]
     Route: 048
  2. EVISTA [Concomitant]
     Route: 065
  3. SCOPOLAMINE [Concomitant]
     Route: 065
  4. VITAMIN TAB [Concomitant]
     Route: 065
  5. THYROID MED [Concomitant]
     Route: 065
  6. SUPPLEMENTS [Concomitant]
     Route: 065
  7. LEVOCETIRIZINE DIHYDROCHLORIDE [Concomitant]
     Route: 065
  8. SYMBICORT [Suspect]
     Indication: CHRONIC OBSTRUCTIVE PULMONARY DISEASE
     Dosage: TWO PUFFS DAILY
     Route: 055
  9. TOPROL-XL [Concomitant]
     Route: 048

REACTIONS (4)
  - FLATULENCE [None]
  - DIARRHOEA [None]
  - RECTAL HAEMORRHAGE [None]
  - INCORRECT DOSE ADMINISTERED [None]
